FAERS Safety Report 9119977 (Version 1)
Quarter: 2013Q1

REPORT INFORMATION
  Report Type: Spontaneous
  Country: FR (occurrence: FR)
  Receive Date: 20130226
  Receipt Date: 20130226
  Transmission Date: 20140127
  Serious: Yes (Hospitalization)
  Sender: FDA-Public Use
  Company Number: FR-JNJFOC-20130208345

PATIENT
  Age: 27 Year
  Sex: Female

DRUGS (3)
  1. IMODIUM [Suspect]
     Indication: DIARRHOEA
     Route: 065
     Dates: start: 201211
  2. AUGMENTIN [Suspect]
     Indication: PRODUCT USED FOR UNKNOWN INDICATION
     Route: 065
     Dates: start: 20121116
  3. BLISTEX [Suspect]
     Indication: MUCOSAL EROSION
     Route: 061
     Dates: start: 201211

REACTIONS (4)
  - Liver injury [Recovered/Resolved]
  - Oedema [Recovered/Resolved]
  - Rash generalised [Recovering/Resolving]
  - Asthenia [Recovered/Resolved]
